FAERS Safety Report 7849462-8 (Version None)
Quarter: 2011Q4

REPORT INFORMATION
  Report Type: 
  Country: None (occurrence: None)
  Receive Date: 20111021
  Receipt Date: 20111011
  Transmission Date: 20120403
  Serious: Yes (Other)
  Sender: FDA-Public Use
  Company Number: 1000024713

PATIENT
  Age: 55 Year
  Sex: Female
  Weight: 53.5 kg

DRUGS (2)
  1. SAVELLA [Suspect]
     Indication: FIBROMYALGIA
     Dosage: 100 MG (50 MG, 2 IN 1 D), ORAL
     Route: 048
     Dates: start: 20110612, end: 20110626
  2. SAVELLA [Suspect]
     Indication: FIBROMYALGIA
     Dosage: ORAL
     Route: 048

REACTIONS (8)
  - HEART RATE INCREASED [None]
  - ASTHENIA [None]
  - VISION BLURRED [None]
  - EYE HAEMORRHAGE [None]
  - INSOMNIA [None]
  - MALAISE [None]
  - BLOOD PRESSURE INCREASED [None]
  - MIGRAINE [None]
